FAERS Safety Report 21396362 (Version 1)
Quarter: 2022Q3

REPORT INFORMATION
  Report Type: Spontaneous
  Country: CA (occurrence: CA)
  Receive Date: 20220930
  Receipt Date: 20220930
  Transmission Date: 20221027
  Serious: Yes (Death, Congenital Anomaly, Other)
  Sender: FDA-Public Use
  Company Number: CA-TEVA-2022-CA-2076909

PATIENT
  Age: 28 Week

DRUGS (4)
  1. LOSARTAN POTASSIUM [Suspect]
     Active Substance: LOSARTAN POTASSIUM
     Indication: Maternal exposure timing unspecified
     Route: 064
  2. PERINDOPRIL [Suspect]
     Active Substance: PERINDOPRIL
     Indication: Maternal exposure timing unspecified
     Route: 064
  3. SPIRONOLACTONE [Suspect]
     Active Substance: SPIRONOLACTONE
     Indication: Maternal exposure timing unspecified
     Route: 064
  4. LASIX [Suspect]
     Active Substance: FUROSEMIDE
     Indication: Maternal exposure timing unspecified
     Route: 064

REACTIONS (5)
  - Angiotensin converting enzyme inhibitor foetopathy [Fatal]
  - Hypocalvaria [Fatal]
  - Renal tubular dysfunction [Fatal]
  - Oligohydramnios [Fatal]
  - Foetal exposure during pregnancy [Fatal]
